FAERS Safety Report 9882458 (Version 1)
Quarter: 2014Q1

REPORT INFORMATION
  Report Type: Spontaneous
  Country: DE (occurrence: DE)
  Receive Date: 20140207
  Receipt Date: 20140207
  Transmission Date: 20141002
  Serious: Yes (Other)
  Sender: FDA-Public Use
  Company Number: DE-PFIZER INC-2014031493

PATIENT
  Age: 84 Year
  Sex: Female

DRUGS (2)
  1. XALATAN [Suspect]
     Dosage: 1 GTT, 1X/DAY (BOTH EYES)
     Dates: start: 2003
  2. XALATAN [Suspect]
     Dosage: 1 GTT, 2X/DAY

REACTIONS (3)
  - Intraocular pressure increased [Unknown]
  - Lacrimation increased [Not Recovered/Not Resolved]
  - Off label use [Recovered/Resolved]
